FAERS Safety Report 18335037 (Version 1)
Quarter: 2020Q4

REPORT INFORMATION
  Report Type: Spontaneous
  Country: US (occurrence: US)
  Receive Date: 20201001
  Receipt Date: 20201001
  Transmission Date: 20210113
  Serious: No
  Sender: FDA-Public Use
  Company Number: US-ASTRAZENECA-2020SF26148

PATIENT

DRUGS (1)
  1. SYMLIN [Suspect]
     Active Substance: PRAMLINTIDE ACETATE
     Dosage: UNKNOWN DOSE AND FREQUENCY
     Route: 058

REACTIONS (2)
  - Hypoglycaemia [Unknown]
  - Drug delivery system malfunction [Unknown]
